FAERS Safety Report 19600762 (Version 3)
Quarter: 2023Q2

REPORT INFORMATION
  Report Type: Spontaneous
  Country: US (occurrence: US)
  Receive Date: 20210723
  Receipt Date: 20230505
  Transmission Date: 20230722
  Serious: No
  Sender: FDA-Public Use
  Company Number: US-GLAXOSMITHKLINE-US2021AMR151954

PATIENT
  Sex: Female

DRUGS (1)
  1. ZEJULA [Suspect]
     Active Substance: NIRAPARIB
     Indication: Carbohydrate antigen 125 increased
     Dosage: 200 MG, QD
     Dates: start: 20210622

REACTIONS (4)
  - Memory impairment [Recovering/Resolving]
  - Confusional state [Not Recovered/Not Resolved]
  - Depression [Unknown]
  - Fatigue [Recovering/Resolving]
